FAERS Safety Report 5746046-2 (Version None)
Quarter: 2008Q2

REPORT INFORMATION
  Report Type: 
  Country: None (occurrence: None)
  Receive Date: 20080522
  Receipt Date: 20080513
  Transmission Date: 20081010
  Serious: Yes (Other)
  Sender: FDA-Public Use
  Company Number: US-JNJFOC-20080502735

PATIENT
  Sex: Male
  Weight: 65.77 kg

DRUGS (5)
  1. REMICADE [Suspect]
     Indication: CROHN'S DISEASE
     Route: 042
  2. PENTASA [Concomitant]
     Indication: CROHN'S DISEASE
  3. PRILOSEC [Concomitant]
     Indication: DYSPEPSIA
  4. PRILOSEC [Concomitant]
     Indication: ULCER
  5. ENTOCORT EC [Concomitant]

REACTIONS (3)
  - BONE DISORDER [None]
  - FIBROMYALGIA [None]
  - NERVE INJURY [None]
